FAERS Safety Report 4424986-4 (Version None)
Quarter: 2004Q3

REPORT INFORMATION
  Report Type: 
  Country: None (occurrence: None)
  Receive Date: 20040813
  Receipt Date: 20040813
  Transmission Date: 20050211
  Serious: No
  Sender: FDA-Public Use
  Company Number: None

PATIENT
  Age: 56 Year

DRUGS (1)
  1. CRESTOR [Suspect]
     Indication: BLOOD CHOLESTEROL INCREASED
     Dosage: 10 MG PO QPM
     Route: 048

REACTIONS (4)
  - ABDOMINAL PAIN UPPER [None]
  - ARTHRALGIA [None]
  - HEADACHE [None]
  - MYALGIA [None]
